FAERS Safety Report 13902431 (Version 1)
Quarter: 2017Q3

REPORT INFORMATION
  Report Type: Spontaneous
  Country: US (occurrence: US)
  Receive Date: 20170824
  Receipt Date: 20170824
  Transmission Date: 20171127
  Serious: No
  Sender: FDA-Public Use
  Company Number: US-ROCHE-758668

PATIENT
  Sex: Female

DRUGS (2)
  1. HERCEPTIN [Suspect]
     Active Substance: TRASTUZUMAB
     Route: 042
  2. HERCEPTIN [Suspect]
     Active Substance: TRASTUZUMAB
     Indication: BREAST CANCER STAGE III
     Dosage: FREQUENCY : 3 WEEKLY. STARTED IN FIRST WEEK OF OCTOBER
     Route: 042

REACTIONS (3)
  - Dry skin [Unknown]
  - Myalgia [Unknown]
  - Amenorrhoea [Unknown]
